FAERS Safety Report 16865169 (Version 2)
Quarter: 2019Q4

REPORT INFORMATION
  Report Type: Spontaneous
  Country: JP (occurrence: JP)
  Receive Date: 20190930
  Receipt Date: 20191031
  Transmission Date: 20200122
  Serious: Yes (Hospitalization, Other)
  Sender: FDA-Public Use
  Company Number: JP-AMGEN-JPNSP2019157886

PATIENT
  Age: 60 Year
  Sex: Female
  Weight: 97.8 kg

DRUGS (6)
  1. RIONA [Concomitant]
     Active Substance: FERRIC CITRATE ANHYDROUS
     Dosage: 1500 MG
     Route: 048
     Dates: start: 20190520, end: 20190612
  2. FOSRENOL [Concomitant]
     Active Substance: LANTHANUM CARBONATE
     Dosage: 750 MILLIGRAM
     Route: 048
  3. P-TOL [SUCROFERRIC OXYHYDROXIDE] [Concomitant]
     Dosage: 750 MILLIGRAM
     Route: 048
  4. PARSABIV [Suspect]
     Active Substance: ETELCALCETIDE HYDROCHLORIDE
     Indication: HYPERPARATHYROIDISM SECONDARY
     Dosage: 7.5 MILLIGRAM, 3 TIMES/WK (7.5 MG, Q56H)
     Route: 010
     Dates: start: 20190607
  5. OXAROL [Concomitant]
     Active Substance: MAXACALCITOL
     Dosage: 2.5 MILLIGRAM, 3 TIMES/WK (2.5 MG, Q56H)
     Route: 042
     Dates: start: 20190422
  6. RIONA [Concomitant]
     Active Substance: FERRIC CITRATE ANHYDROUS
     Dosage: UNK
     Route: 048
     Dates: start: 20190626

REACTIONS (2)
  - Cerebral infarction [Not Recovered/Not Resolved]
  - Abdominal discomfort [Unknown]

NARRATIVE: CASE EVENT DATE: 20190612
